FAERS Safety Report 10665643 (Version 1)
Quarter: 2014Q4

REPORT INFORMATION
  Report Type: Spontaneous
  Country: US (occurrence: US)
  Receive Date: 20141219
  Receipt Date: 20141219
  Transmission Date: 20150529
  Serious: No
  Sender: FDA-Public Use
  Company Number: US-BAYER-2014-185997

PATIENT
  Age: 28 Year
  Sex: Female

DRUGS (1)
  1. MIRENA [Suspect]
     Active Substance: LEVONORGESTREL
     Indication: CONTRACEPTION
     Dosage: 20 MCG/24HR, CONT
     Route: 015
     Dates: start: 20140910, end: 20141212

REACTIONS (6)
  - Vaginal haemorrhage [None]
  - Unintentional medical device removal [None]
  - Abdominal pain lower [None]
  - Metrorrhagia [None]
  - Vaginal haemorrhage [None]
  - Device expulsion [None]

NARRATIVE: CASE EVENT DATE: 2014
